FAERS Safety Report 6034980-8 (Version None)
Quarter: 2009Q1

REPORT INFORMATION
  Report Type: 
  Country: None (occurrence: None)
  Receive Date: 20090112
  Receipt Date: 20081231
  Transmission Date: 20090719
  Serious: Yes (Hospitalization, Other)
  Sender: FDA-Public Use
  Company Number: GB-PFIZER INC-2009150753

PATIENT

DRUGS (1)
  1. CHAMPIX [Suspect]
     Indication: SMOKING CESSATION THERAPY
     Dosage: 0.5 MG, UNK
     Route: 048
     Dates: start: 20081208

REACTIONS (7)
  - COLD SWEAT [None]
  - DIASTOLIC HYPERTENSION [None]
  - DIZZINESS [None]
  - FALL [None]
  - HEADACHE [None]
  - HEART RATE INCREASED [None]
  - PALLOR [None]
